FAERS Safety Report 9538559 (Version 2)
Quarter: 2013Q4

REPORT INFORMATION
  Report Type: Spontaneous
  Country: US (occurrence: US)
  Receive Date: 20130920
  Receipt Date: 20131022
  Transmission Date: 20140711
  Serious: Yes (Other)
  Sender: FDA-Public Use
  Company Number: US-PFIZER INC-2013269053

PATIENT
  Age: 55 Year
  Sex: Female
  Weight: 97.5 kg

DRUGS (12)
  1. CHANTIX [Suspect]
     Indication: SMOKING CESSATION THERAPY
     Dosage: UNK
     Route: 048
  2. CHANTIX [Interacting]
     Dosage: 0.5 MG, 1X/DAY
     Route: 048
     Dates: start: 20130909
  3. DILTIAZEM HCL [Interacting]
     Indication: HYPERTENSION
     Dosage: 120 MG, 1X/DAY
     Route: 048
     Dates: start: 2013
  4. SIMVASTATIN [Interacting]
     Indication: BLOOD CHOLESTEROL INCREASED
     Dosage: 20 MG, DAILY
     Dates: start: 2013
  5. LORAZEPAM [Interacting]
     Dosage: 0.5 MG, 2X/DAY
  6. PAROXETINE HYDROCHLORIDE [Interacting]
     Dosage: 40 MG, 1X/DAY
  7. LEVOTHYROXINE SODIUM [Interacting]
     Dosage: 150 UG, 1X/DAY
  8. RISPERIDONE [Interacting]
     Dosage: 1 MG, 1X/DAY
  9. SYMBICORT [Interacting]
     Indication: CHRONIC OBSTRUCTIVE PULMONARY DISEASE
     Dosage: UNK
     Dates: start: 201309
  10. PROAIR HFA [Interacting]
     Indication: CHRONIC OBSTRUCTIVE PULMONARY DISEASE
     Dosage: UNK
     Dates: start: 201309
  11. ATROVENT HFA [Interacting]
     Indication: CHRONIC OBSTRUCTIVE PULMONARY DISEASE
     Dosage: UNK
     Dates: start: 201309
  12. CARBAMAZEPINE [Interacting]
     Dosage: 200 MG, 2X/DAY
     Route: 048

REACTIONS (6)
  - Chronic obstructive pulmonary disease [Unknown]
  - Hypertension [Unknown]
  - Drug ineffective [Unknown]
  - Blood cholesterol increased [Unknown]
  - Tobacco user [Unknown]
  - Drug interaction [Unknown]
